FAERS Safety Report 7237737-5 (Version None)
Quarter: 2011Q1

REPORT INFORMATION
  Report Type: 
  Country: None (occurrence: None)
  Receive Date: 20110121
  Receipt Date: 20110112
  Transmission Date: 20110831
  Serious: Yes (Death, Life-Threatening, Other)
  Sender: FDA-Public Use
  Company Number: JP-ROCHE-748120

PATIENT
  Age: 63 Year
  Sex: Male

DRUGS (6)
  1. AVASTIN [Suspect]
     Indication: LARGE INTESTINE CARCINOMA
     Route: 041
  2. LEVOFOLINATE [Suspect]
     Indication: LARGE INTESTINE CARCINOMA
     Route: 041
  3. 5-FU [Suspect]
     Indication: LARGE INTESTINE CARCINOMA
     Dosage: ROUTE: INTRAVENOUS BOLUS
     Route: 042
  4. DECADRON [Concomitant]
     Dosage: DOSAGE IS UNCERTAIN.
  5. IRINOTECAN HYDROCHLORIDE [Suspect]
     Indication: LARGE INTESTINE CARCINOMA
     Route: 041
  6. 5-FU [Suspect]
     Dosage: ROUTE: INTRAVENOUS DRIP
     Route: 042

REACTIONS (7)
  - BLOOD PRESSURE FLUCTUATION [None]
  - DISEASE PROGRESSION [None]
  - SHOCK [None]
  - ABDOMINAL INFECTION [None]
  - HAEMORRHAGE [None]
  - VESSEL PERFORATION [None]
  - ILEAL ULCER [None]
